FAERS Safety Report 17263885 (Version 1)
Quarter: 2019Q4

REPORT INFORMATION
  Report Type: Spontaneous
  Country: US (occurrence: US)
  Receive Date: 20191218
  Receipt Date: 20191218
  Transmission Date: 20200122
  Serious: Yes (Hospitalization)
  Sender: FDA-Public Use
  Company Number: None

PATIENT
  Age: 68 Year
  Sex: Male
  Weight: 88 kg

DRUGS (1)
  1. ROSUVASTATIN (ROSUVASTATIN CA 40MG TAB) [Suspect]
     Active Substance: ROSUVASTATIN
     Indication: RHABDOMYOLYSIS
     Route: 048
     Dates: start: 20190607, end: 20190703

REACTIONS (13)
  - Pain [None]
  - Constipation [None]
  - Rhabdomyolysis [None]
  - Leukocytosis [None]
  - Diarrhoea [None]
  - Hepatic steatosis [None]
  - Malaise [None]
  - Renal cyst [None]
  - Blister [None]
  - Dermatitis [None]
  - Rash [None]
  - Nausea [None]
  - Acute kidney injury [None]

NARRATIVE: CASE EVENT DATE: 20190703
